FAERS Safety Report 4440696-1 (Version None)
Quarter: 2004Q3

REPORT INFORMATION
  Report Type: 
  Country: None (occurrence: None)
  Receive Date: 20040903
  Receipt Date: 20040727
  Transmission Date: 20050211
  Serious: Yes (Hospitalization)
  Sender: FDA-Public Use
  Company Number: US-BRISTOL-MYERS SQUIBB COMPANY-12652046

PATIENT
  Age: 74 Year
  Sex: Male
  Weight: 92 kg

DRUGS (8)
  1. ERBITUX [Suspect]
     Indication: COLORECTAL CANCER METASTATIC
     Route: 042
     Dates: start: 20040721, end: 20040721
  2. BENADRYL [Concomitant]
     Indication: PREMEDICATION
     Dates: start: 20040721, end: 20040721
  3. HYDROCORTISONE [Concomitant]
     Indication: PREMEDICATION
     Dates: start: 20040721, end: 20040721
  4. TYLENOL [Concomitant]
     Indication: PREMEDICATION
     Dates: start: 20040721, end: 20040721
  5. ZOFRAN [Concomitant]
     Indication: PREMEDICATION
     Dates: start: 20040721, end: 20040721
  6. ADVIL [Concomitant]
  7. ASPIRIN [Concomitant]
  8. IMODIUM [Concomitant]

REACTIONS (7)
  - BLOOD PRESSURE DECREASED [None]
  - BLOOD PRESSURE FLUCTUATION [None]
  - DYSPNOEA [None]
  - ERYTHEMA [None]
  - RASH [None]
  - URTICARIA [None]
  - WHEEZING [None]
